FAERS Safety Report 7306404-1 (Version None)
Quarter: 2011Q1

REPORT INFORMATION
  Report Type: 
  Country: None (occurrence: None)
  Receive Date: 20110210
  Receipt Date: 20110131
  Transmission Date: 20110831
  Serious: Yes (Congenital Anomaly)
  Sender: FDA-Public Use
  Company Number: LEO-2011-00104

PATIENT
  Age: 1 Day
  Sex: Female

DRUGS (7)
  1. ASPEGIC 325 [Suspect]
     Indication: DRUG EXPOSURE DURING PREGNANCY
     Dosage: 250 MG (250 MG, 1 IN 1 D),TRANSPLACENTAL
     Route: 064
     Dates: end: 20090501
  2. CALTRATE (CALCIUM CARBONATE) [Suspect]
     Indication: DRUG EXPOSURE DURING PREGNANCY
     Dosage: 1 DOSAGE FORMS (1 IN 1 D),TRANSPLACENTAL
     Route: 064
     Dates: end: 20090515
  3. CELLCEPT [Suspect]
     Indication: DRUG EXPOSURE DURING PREGNANCY
     Dosage: 500 MG (250 MG,2 IN 1 D),TRANSPLACENTAL
     Route: 064
  4. DELURSAN (URSODEOXYCHOLIC ACID)(200 MILLIGRAM) [Suspect]
     Indication: DRUG EXPOSURE DURING PREGNANCY
     Dosage: 800 MG (200 MG,4 IN 1 D),TRANSPLACENTAL
     Route: 064
     Dates: end: 20090915
  5. PROGRAF [Suspect]
     Indication: DRUG EXPOSURE DURING PREGNANCY
     Dosage: 2.5 GM (2.5 GM, 1 IN 1 D),TRANSPLACENTAL
     Route: 064
     Dates: end: 20090515
  6. INNOHEP [Suspect]
     Indication: DRUG EXPOSURE DURING PREGNANCY
     Dosage: 10000 IU (10000 IU, 1 IN 1 D),TRANSPLACENTAL
     Route: 064
     Dates: start: 20000101
  7. PENTASA [Concomitant]

REACTIONS (6)
  - CONGENITAL ANOMALY [None]
  - DYSMORPHISM [None]
  - INFANTILE GENETIC AGRANULOCYTOSIS [None]
  - CARTILAGE DEVELOPMENT DISORDER [None]
  - DISORDER OF ORBIT [None]
  - MATERNAL DRUGS AFFECTING FOETUS [None]
